FAERS Safety Report 8923476 (Version 1)
Quarter: 2012Q4

REPORT INFORMATION
  Report Type: 
  Country: VE (occurrence: VE)
  Receive Date: 20121123
  Receipt Date: 20121123
  Transmission Date: 20130627
  Serious: Yes (Other)
  Sender: FDA-Public Use
  Company Number: VE-PFIZER INC-2012291044

PATIENT
  Age: 28 Year
  Sex: Female

DRUGS (2)
  1. LYRICA [Suspect]
     Indication: CIRCULATORY DISORDER PERIPHERAL
     Dosage: UNK
     Route: 048
     Dates: end: 201201
  2. LIPITOR [Concomitant]
     Dosage: UNK
     Route: 048

REACTIONS (1)
  - Caesarean section [Recovered/Resolved]
